FAERS Safety Report 8592765-2 (Version None)
Quarter: 2012Q3

REPORT INFORMATION
  Report Type: 
  Country: None (occurrence: None)
  Receive Date: 20120814
  Receipt Date: 20120807
  Transmission Date: 20120928
  Serious: Yes (Other)
  Sender: FDA-Public Use
  Company Number: AU-UCBSA-063345

PATIENT
  Age: 49 Year
  Sex: Female

DRUGS (7)
  1. TOPAMAX [Concomitant]
     Indication: CONVULSION
     Route: 048
  2. TEGRETOL [Concomitant]
     Indication: CONVULSION
     Route: 048
  3. VIMPAT [Suspect]
     Route: 048
     Dates: start: 20111123, end: 20111101
  4. VIMPAT [Suspect]
     Indication: CONVULSION
     Route: 048
     Dates: start: 20111130, end: 20120112
  5. TOPAMAX [Concomitant]
     Dosage: DOWN-TITRATED
  6. VIMPAT [Suspect]
     Route: 048
     Dates: start: 20111116, end: 20111101
  7. LIPITOR [Concomitant]
     Indication: HYPERCHOLESTEROLAEMIA

REACTIONS (1)
  - CONVULSION [None]
